FAERS Safety Report 8407629-4 (Version None)
Quarter: 2012Q2

REPORT INFORMATION
  Report Type: 
  Country: None (occurrence: None)
  Receive Date: 20120529
  Receipt Date: 20071119
  Transmission Date: 20120825
  Serious: Yes (Hospitalization)
  Sender: FDA-Public Use
  Company Number: 02100-JPN-07-0686

PATIENT
  Age: 86 Year
  Sex: Male
  Weight: 50.2 kg

DRUGS (6)
  1. AMLODIN OD (AMLODIPINE BESILATE) [Concomitant]
  2. PLETAL [Suspect]
     Dosage: 100 MG, BID, ORAL
     Route: 048
     Dates: start: 20060510
  3. GASMOTIN (MOSAPRIDE CITRATE) [Concomitant]
  4. MICARDIS [Concomitant]
  5. MAGNESIUM OXIDE (MAGNESIUM OXIDE) [Concomitant]
  6. NORVASC [Concomitant]

REACTIONS (3)
  - CEREBRAL HAEMORRHAGE [None]
  - PNEUMONIA ASPIRATION [None]
  - GASTROSTOMY [None]
